FAERS Safety Report 16983727 (Version 1)
Quarter: 2019Q4

REPORT INFORMATION
  Report Type: Spontaneous
  Country: US (occurrence: US)
  Receive Date: 20190917
  Receipt Date: 20190917
  Transmission Date: 20200122
  Serious: No
  Sender: FDA-Public Use
  Company Number: None

PATIENT
  Age: 60 Year
  Sex: Female

DRUGS (1)
  1. TRIUMEQ [Suspect]
     Active Substance: ABACAVIR SULFATE\DOLUTEGRAVIR SODIUM\LAMIVUDINE
     Dosage: ?          OTHER DOSE:60-50-300MG;?
     Route: 048
     Dates: start: 201802

REACTIONS (2)
  - Rash pruritic [None]
  - Rash papular [None]

NARRATIVE: CASE EVENT DATE: 20190915
